FAERS Safety Report 19519842 (Version 1)
Quarter: 2021Q3

REPORT INFORMATION
  Report Type: Spontaneous
  Country: US (occurrence: US)
  Receive Date: 20210712
  Receipt Date: 20210712
  Transmission Date: 20211014
  Serious: No
  Sender: FDA-Public Use
  Company Number: US-PFIZER INC-2021800140

PATIENT
  Age: 70 Year
  Sex: Female
  Weight: 94.35 kg

DRUGS (2)
  1. ARTHROTEC [Suspect]
     Active Substance: DICLOFENAC SODIUM\MISOPROSTOL
     Dosage: 50 MG TWO TIMES A DAY AS NEEDED
     Dates: start: 2010, end: 2020
  2. VITAMIN B12 + FOLIC ACID [Concomitant]
     Active Substance: CYANOCOBALAMIN\FOLIC ACID
     Indication: PERNICIOUS ANAEMIA
     Dosage: 1 ML, MONTHLY
     Dates: start: 2008

REACTIONS (1)
  - Gallbladder disorder [Unknown]
